FAERS Safety Report 6129368-5 (Version None)
Quarter: 2009Q1

REPORT INFORMATION
  Report Type: 
  Country: None (occurrence: None)
  Receive Date: 20090324
  Receipt Date: 20090317
  Transmission Date: 20090719
  Serious: Yes (Other)
  Sender: FDA-Public Use
  Company Number: PHHY2008JP32565

PATIENT
  Sex: Female

DRUGS (2)
  1. ZOMETA [Suspect]
     Indication: METASTASES TO BONE
     Dosage: 4 MG, UNK
     Route: 042
     Dates: start: 20060701, end: 20081215
  2. AREDIA [Suspect]
     Indication: METASTASES TO BONE
     Route: 042

REACTIONS (7)
  - BONE DISORDER [None]
  - BONE PAIN [None]
  - BONE SWELLING [None]
  - FISTULA [None]
  - OSTEITIS [None]
  - OSTEONECROSIS [None]
  - PURULENT DISCHARGE [None]
